FAERS Safety Report 19087824 (Version 2)
Quarter: 2021Q2

REPORT INFORMATION
  Report Type: Spontaneous
  Country: DE (occurrence: DE)
  Receive Date: 20210402
  Receipt Date: 20210413
  Transmission Date: 20210717
  Serious: Yes (Hospitalization, Other)
  Sender: FDA-Public Use
  Company Number: DE-ASTRAZENECA-2021A161019

PATIENT
  Age: 66 Year
  Sex: Female

DRUGS (5)
  1. MEPOLIZUMAB [Suspect]
     Active Substance: MEPOLIZUMAB
     Dosage: UNK UNK, Q4W
     Route: 058
     Dates: start: 20160421
  2. BENRALIZUMAB. [Suspect]
     Active Substance: BENRALIZUMAB
     Indication: ASTHMA
     Dosage: 30 MG,EVERY 2ND MONTH
     Route: 065
     Dates: start: 20180417
  3. PREDNISOLONE. [Suspect]
     Active Substance: PREDNISOLONE
     Route: 065
  4. RESLIZUMAB [Suspect]
     Active Substance: RESLIZUMAB
     Dosage: UNK UNK, Q4W
     Route: 065
     Dates: start: 20170405, end: 201803
  5. PREDNISOLONE. [Suspect]
     Active Substance: PREDNISOLONE
     Route: 065
     Dates: start: 2015

REACTIONS (8)
  - Headache [Recovered/Resolved]
  - Cough [Unknown]
  - Pain in extremity [Unknown]
  - Arthralgia [Recovering/Resolving]
  - Chest pain [Recovered/Resolved]
  - Pneumonia [Unknown]
  - Pain [Unknown]
  - Osteopenia [Unknown]

NARRATIVE: CASE EVENT DATE: 202005
